FAERS Safety Report 18163036 (Version 1)
Quarter: 2020Q3

REPORT INFORMATION
  Report Type: Spontaneous
  Country: US (occurrence: US)
  Receive Date: 20200818
  Receipt Date: 20200818
  Transmission Date: 20201103
  Serious: No
  Sender: FDA-Public Use
  Company Number: None

PATIENT
  Sex: Male
  Weight: 55.35 kg

DRUGS (1)
  1. LIFE STREAMS CBD GUMMY [Suspect]
     Active Substance: CANNABIDIOL\HERBALS

REACTIONS (1)
  - Weight decreased [None]
